FAERS Safety Report 20612210 (Version 1)
Quarter: 2022Q1

REPORT INFORMATION
  Report Type: Spontaneous
  Country: FR (occurrence: FR)
  Receive Date: 20220318
  Receipt Date: 20220318
  Transmission Date: 20220423
  Serious: Yes (Disabling, Congenital Anomaly, Other)
  Sender: FDA-Public Use
  Company Number: FR-ABBVIE-22K-056-4321217-00

PATIENT

DRUGS (6)
  1. VALPROATE SODIUM [Suspect]
     Active Substance: VALPROATE SODIUM
     Indication: Maternal exposure timing unspecified
     Route: 064
  2. VALPROATE SODIUM [Suspect]
     Active Substance: VALPROATE SODIUM
     Indication: Maternal exposure timing unspecified
     Route: 064
  3. VALPROATE SODIUM [Suspect]
     Active Substance: VALPROATE SODIUM
     Route: 064
  4. FOLIC ACID [Concomitant]
     Active Substance: FOLIC ACID
     Indication: Maternal exposure timing unspecified
  5. SODIUM FEREDETATE [Concomitant]
     Active Substance: SODIUM FEREDETATE
     Indication: Maternal exposure timing unspecified
  6. CHOLECALCIFEROL [Concomitant]
     Active Substance: CHOLECALCIFEROL
     Indication: Maternal exposure timing unspecified

REACTIONS (19)
  - Pectus excavatum [Unknown]
  - Dysmorphism [Unknown]
  - Dyspraxia [Unknown]
  - Language disorder [Unknown]
  - Sensory integrative dysfunction [Unknown]
  - Autism spectrum disorder [Unknown]
  - Psychiatric symptom [Unknown]
  - Learning disorder [Unknown]
  - Cognitive disorder [Unknown]
  - Loss of personal independence in daily activities [Unknown]
  - Behaviour disorder [Unknown]
  - Impulsive behaviour [Unknown]
  - Aggression [Unknown]
  - Unevaluable event [Unknown]
  - Clumsiness [Unknown]
  - Strabismus [Unknown]
  - Sluggishness [Unknown]
  - Ear, nose and throat disorder [Unknown]
  - Foetal exposure during pregnancy [Unknown]

NARRATIVE: CASE EVENT DATE: 20181030
